FAERS Safety Report 20686823 (Version 1)
Quarter: 2022Q2

REPORT INFORMATION
  Report Type: Spontaneous
  Country: US (occurrence: US)
  Receive Date: 20220407
  Receipt Date: 20220407
  Transmission Date: 20220721
  Serious: No
  Sender: FDA-Public Use
  Company Number: US-BIOMARINAP-US-2022-142413

PATIENT
  Age: 11 Year
  Sex: Male

DRUGS (1)
  1. VOXZOGO [Suspect]
     Active Substance: VOSORITIDE
     Indication: Osteochondrodysplasia
     Dosage: 0.25 MILLILITER, QD
     Route: 058
     Dates: start: 20220326

REACTIONS (2)
  - Influenza [Unknown]
  - Nasopharyngitis [Unknown]
